FAERS Safety Report 16736461 (Version 1)
Quarter: 2019Q3

REPORT INFORMATION
  Report Type: Spontaneous
  Country: JP (occurrence: JP)
  Receive Date: 20190823
  Receipt Date: 20190823
  Transmission Date: 20191005
  Serious: Yes (Life-Threatening, Hospitalization)
  Sender: FDA-Public Use
  Company Number: JP-ROCHE-2244134

PATIENT
  Age: 79 Year
  Sex: Male
  Weight: 63.2 kg

DRUGS (1)
  1. LUCENTIS [Suspect]
     Active Substance: RANIBIZUMAB
     Indication: DIABETIC RETINAL OEDEMA
     Route: 031
     Dates: start: 20181225

REACTIONS (6)
  - Vomiting [Unknown]
  - Myocardial ischaemia [Unknown]
  - Hyperglycaemia [Unknown]
  - Loss of consciousness [Unknown]
  - Hyperkalaemia [Recovering/Resolving]
  - Anaemia [Unknown]

NARRATIVE: CASE EVENT DATE: 20181227
